FAERS Safety Report 17190517 (Version 1)
Quarter: 2019Q4

REPORT INFORMATION
  Report Type: Spontaneous
  Country: CA (occurrence: CA)
  Receive Date: 20191223
  Receipt Date: 20191223
  Transmission Date: 20200122
  Serious: Yes (Other)
  Sender: FDA-Public Use
  Company Number: CA-GLAXOSMITHKLINE-CA2019AMR231957

PATIENT

DRUGS (5)
  1. CORTEF [Suspect]
     Active Substance: HYDROCORTISONE
     Indication: CORTISOL DECREASED
     Dosage: UNK
  2. ADVAIR HFA [Suspect]
     Active Substance: FLUTICASONE PROPIONATE\SALMETEROL XINAFOATE
     Indication: ASTHMA
     Dosage: 2 DF, QD, 500 UG
  3. SINGULAIR [Concomitant]
     Active Substance: MONTELUKAST SODIUM
     Indication: PRODUCT USED FOR UNKNOWN INDICATION
     Dosage: UNK
  4. LYRICA [Concomitant]
     Active Substance: PREGABALIN
     Indication: PRODUCT USED FOR UNKNOWN INDICATION
     Dosage: 2 DF, QD, 350 MG
  5. NORTRIPTYLINE CAPSULES [Concomitant]
     Active Substance: NORTRIPTYLINE HYDROCHLORIDE
     Indication: PRODUCT USED FOR UNKNOWN INDICATION
     Dosage: 1 DF, QD,10 MG

REACTIONS (13)
  - Hyperhidrosis [Unknown]
  - Sleep apnoea syndrome [Unknown]
  - Asthenia [Unknown]
  - Blood testosterone decreased [Unknown]
  - Fatigue [Unknown]
  - Fluid retention [Unknown]
  - Intervertebral disc protrusion [Unknown]
  - Ill-defined disorder [Unknown]
  - Pain in extremity [Unknown]
  - Bone disorder [Unknown]
  - Swelling face [Unknown]
  - Weight increased [Unknown]
  - Adrenal insufficiency [Unknown]
